FAERS Safety Report 7025491-1 (Version None)
Quarter: 2010Q4

REPORT INFORMATION
  Report Type: 
  Country: None (occurrence: None)
  Receive Date: 20101001
  Receipt Date: 20100924
  Transmission Date: 20110411
  Serious: Yes (Other)
  Sender: FDA-Public Use
  Company Number: US-AMGEN-KDL438726

PATIENT
  Sex: Female
  Weight: 59.2 kg

DRUGS (9)
  1. ENBREL [Suspect]
     Indication: RHEUMATOID ARTHRITIS
     Route: 058
     Dates: start: 20100422
  2. MOBIC [Concomitant]
  3. LEVOTHYROXINE SODIUM [Concomitant]
  4. CALTRATE [Concomitant]
  5. WELLBUTRIN [Concomitant]
  6. FOLIC ACID [Concomitant]
  7. ASPIRIN [Concomitant]
  8. METHOTREXATE [Concomitant]
  9. LEXAPRO [Concomitant]

REACTIONS (14)
  - BURNS SECOND DEGREE [None]
  - BURNS THIRD DEGREE [None]
  - COUGH [None]
  - DEPRESSION [None]
  - DIZZINESS [None]
  - FALL [None]
  - FATIGUE [None]
  - HAEMATOCRIT ABNORMAL [None]
  - INSOMNIA [None]
  - MUSCULOSKELETAL CHEST PAIN [None]
  - NECK PAIN [None]
  - PLEURISY [None]
  - RHEUMATOID ARTHRITIS [None]
  - RIB FRACTURE [None]
